FAERS Safety Report 15923638 (Version 1)
Quarter: 2019Q1

REPORT INFORMATION
  Report Type: Spontaneous
  Country: US (occurrence: US)
  Receive Date: 20190206
  Receipt Date: 20190206
  Transmission Date: 20190417
  Serious: Yes (Disabling, Other)
  Sender: FDA-Public Use
  Company Number: None

PATIENT
  Age: 82 Year
  Sex: Female

DRUGS (18)
  1. SYSTOLIC [Concomitant]
  2. FLAGYL [Concomitant]
     Active Substance: METRONIDAZOLE\METRONIDAZOLE HYDROCHLORIDE
  3. SILDENAFIL. [Concomitant]
     Active Substance: SILDENAFIL
  4. KEPPRA [Suspect]
     Active Substance: LEVETIRACETAM
     Indication: SEIZURE
     Dosage: QUANTITY:1 TABLET(S);OTHER FREQUENCY:NIGHTLY;?
     Route: 048
  5. PROTONIX [Concomitant]
     Active Substance: PANTOPRAZOLE SODIUM
  6. MIDODRINE [Concomitant]
     Active Substance: MIDODRINE
  7. LISINOPRIL. [Concomitant]
     Active Substance: LISINOPRIL
  8. CIPRO [Concomitant]
     Active Substance: CIPROFLOXACIN HYDROCHLORIDE
  9. LASIX [Concomitant]
     Active Substance: FUROSEMIDE
  10. KEPPRA [Concomitant]
     Active Substance: LEVETIRACETAM
  11. LASIX [Concomitant]
     Active Substance: FUROSEMIDE
  12. ZOFRAN [Concomitant]
     Active Substance: ONDANSETRON HYDROCHLORIDE
  13. BUMEX [Concomitant]
     Active Substance: BUMETANIDE
  14. TIMOLOL. [Concomitant]
     Active Substance: TIMOLOL
  15. AMLODIPINE [Concomitant]
     Active Substance: AMLODIPINE BESYLATE
  16. DIFLUCAN [Concomitant]
     Active Substance: FLUCONAZOLE
  17. POTASSIUM CHLORIDE. [Concomitant]
     Active Substance: POTASSIUM CHLORIDE
  18. DORZOLAMIDE [Concomitant]
     Active Substance: DORZOLAMIDE

REACTIONS (9)
  - Agitation [None]
  - Asthenia [None]
  - Speech disorder [None]
  - Aggression [None]
  - Delusion [None]
  - Lethargy [None]
  - Decreased appetite [None]
  - Cognitive disorder [None]
  - Confusional state [None]

NARRATIVE: CASE EVENT DATE: 20190204
